FAERS Safety Report 19295148 (Version 1)
Quarter: 2021Q2

REPORT INFORMATION
  Report Type: Spontaneous
  Country: US (occurrence: US)
  Receive Date: 20210524
  Receipt Date: 20210524
  Transmission Date: 20210717
  Serious: No
  Sender: FDA-Public Use
  Company Number: US-APOTEX-2020AP016998

PATIENT
  Age: 31 Year
  Sex: Female

DRUGS (3)
  1. FOSPHENYTOIN [Suspect]
     Active Substance: FOSPHENYTOIN
     Indication: PRODUCT USED FOR UNKNOWN INDICATION
     Dosage: UNK
     Route: 042
  2. ACETAZOLAMIDE. [Suspect]
     Active Substance: ACETAZOLAMIDE
     Indication: BLOOD POTASSIUM DECREASED
     Dosage: UNK
     Route: 065
  3. ALBUTEROL. [Suspect]
     Active Substance: ALBUTEROL
     Indication: BLOOD POTASSIUM DECREASED
     Dosage: UNK
     Route: 065

REACTIONS (3)
  - Drug ineffective [Unknown]
  - Tachycardia [Unknown]
  - Paraesthesia [Unknown]
